FAERS Safety Report 9307684 (Version 1)
Quarter: 2013Q2

REPORT INFORMATION
  Report Type: Spontaneous
  Country: US (occurrence: US)
  Receive Date: 20130524
  Receipt Date: 20130524
  Transmission Date: 20140414
  Serious: No
  Sender: FDA-Public Use
  Company Number: US-009507513-1305USA013493

PATIENT
  Age: 70 Year
  Sex: Female

DRUGS (1)
  1. ZIOPTAN [Suspect]
     Indication: INTRAOCULAR PRESSURE TEST
     Dosage: ONE LN EACH EYE/ ONCE DAILY
     Dates: start: 201305, end: 20130518

REACTIONS (2)
  - Eye pain [Recovered/Resolved]
  - Ocular hyperaemia [Recovered/Resolved]
